FAERS Safety Report 23394022 (Version 2)
Quarter: 2024Q1

REPORT INFORMATION
  Report Type: Report from Study
  Country: US (occurrence: US)
  Receive Date: 20240111
  Receipt Date: 20240204
  Transmission Date: 20240410
  Serious: Yes (Death, Other)
  Sender: FDA-Public Use
  Company Number: US-ABBVIE-5581108

PATIENT
  Sex: Female

DRUGS (1)
  1. CREON [Suspect]
     Active Substance: PANCRELIPASE AMYLASE\PANCRELIPASE LIPASE\PANCRELIPASE PROTEASE
     Indication: Product used for unknown indication
     Dosage: FORM STRENGTH: 24000 UNIT?FREQUENCY TEXT: 2 TABS FOUR TIMES DAILY W/MEALS
     Route: 048

REACTIONS (3)
  - Pulmonary fibrosis [Fatal]
  - Respiratory arrest [Fatal]
  - COVID-19 [Fatal]
